FAERS Safety Report 9398418 (Version 1)
Quarter: 2013Q3

REPORT INFORMATION
  Report Type: Spontaneous
  Country: US (occurrence: US)
  Receive Date: 20130712
  Receipt Date: 20130712
  Transmission Date: 20140515
  Serious: No
  Sender: FDA-Public Use
  Company Number: US-GLAXOSMITHKLINE-A1018721A

PATIENT
  Sex: 0

DRUGS (1)
  1. FLOVENT [Suspect]
     Indication: SINUS DISORDER
     Dosage: 1SPR PER DAY
     Route: 045

REACTIONS (2)
  - Drug administration error [Unknown]
  - Off label use [Unknown]
